FAERS Safety Report 17905993 (Version 1)
Quarter: 2020Q2

REPORT INFORMATION
  Report Type: Spontaneous
  Country: US (occurrence: US)
  Receive Date: 20200616
  Receipt Date: 20200616
  Transmission Date: 20200714
  Serious: No
  Sender: FDA-Public Use
  Company Number: US-ROCHE-2474605

PATIENT
  Age: 54 Year
  Sex: Female

DRUGS (1)
  1. ACTEMRA [Suspect]
     Active Substance: TOCILIZUMAB
     Indication: TEMPORAL ARTERITIS
     Dosage: ONGOING: YES
     Route: 058
     Dates: start: 201908

REACTIONS (4)
  - Exposure via skin contact [Recovered/Resolved]
  - Device dispensing error [Unknown]
  - Product dose omission [Unknown]
  - Device breakage [Unknown]

NARRATIVE: CASE EVENT DATE: 20191107
